FAERS Safety Report 9131604 (Version 1)
Quarter: 2013Q1

REPORT INFORMATION
  Report Type: Report from Study
  Country: US (occurrence: US)
  Receive Date: 20130301
  Receipt Date: 20130301
  Transmission Date: 20140127
  Serious: No
  Sender: FDA-Public Use
  Company Number: US-MYLANLABS-2012S1009010

PATIENT
  Age: 21 Year
  Sex: Female
  Weight: 54.43 kg

DRUGS (1)
  1. AMNESTEEM CAPSULES [Suspect]
     Dates: end: 2012

REACTIONS (3)
  - Infectious mononucleosis [Not Recovered/Not Resolved]
  - Aspartate aminotransferase increased [Recovered/Resolved]
  - Alanine aminotransferase increased [Recovered/Resolved]
